FAERS Safety Report 6687641-6 (Version None)
Quarter: 2010Q2

REPORT INFORMATION
  Report Type: 
  Country: None (occurrence: None)
  Receive Date: 20100415
  Receipt Date: 20100406
  Transmission Date: 20101027
  Serious: Yes (Hospitalization)
  Sender: FDA-Public Use
  Company Number: 2010EU001359

PATIENT
  Age: 29 Year
  Sex: Female

DRUGS (10)
  1. VESICARE [Suspect]
     Indication: HYPERTONIC BLADDER
     Dosage: 10 MG, UID/QD, ORAL
     Route: 048
     Dates: start: 20091123, end: 20091203
  2. ABILIFY [Concomitant]
  3. ZOLOFT [Concomitant]
  4. WARFARIN SODIUM [Concomitant]
  5. SINGULAIR [Concomitant]
  6. FEXOFENADINE HCL [Concomitant]
  7. CLONAZEPAM [Concomitant]
  8. LYSANTIN (ORPHENADRINE HYDROCHLORIDE) [Concomitant]
  9. SEREVENT [Concomitant]
  10. SERETIDE (SALMETEROL XINAFOATE) [Concomitant]

REACTIONS (6)
  - ANXIETY [None]
  - BIPOLAR DISORDER [None]
  - CONDITION AGGRAVATED [None]
  - DRUG INEFFECTIVE [None]
  - DRUG INTERACTION [None]
  - INSOMNIA [None]
